FAERS Safety Report 5075113-4 (Version None)
Quarter: 2006Q3

REPORT INFORMATION
  Report Type: 
  Country: None (occurrence: None)
  Receive Date: 20060809
  Receipt Date: 20050909
  Transmission Date: 20061208
  Serious: No
  Sender: FDA-Public Use
  Company Number: US-AMGEN-KDL150151

PATIENT
  Sex: Female

DRUGS (3)
  1. PROCRIT [Suspect]
     Indication: RENAL FAILURE CHRONIC
     Dates: start: 20050801
  2. SYNTHROID [Concomitant]
  3. TRIAMTERENE [Concomitant]

REACTIONS (4)
  - ABDOMINAL PAIN UPPER [None]
  - STOMACH DISCOMFORT [None]
  - THIRST [None]
  - TREMOR [None]
